FAERS Safety Report 9217877 (Version 1)
Quarter: 2013Q2

REPORT INFORMATION
  Report Type: Spontaneous
  Country: None (occurrence: US)
  Receive Date: 20130408
  Receipt Date: 20130408
  Transmission Date: 20140414
  Serious: Yes (Other)
  Sender: FDA-Public Use
  Company Number: US-TEVA-396819USA

PATIENT
  Sex: Male

DRUGS (1)
  1. ACTIQ [Suspect]
     Route: 048

REACTIONS (2)
  - Neoplasm malignant [Unknown]
  - Dysphagia [Unknown]
